FAERS Safety Report 18901341 (Version 2)
Quarter: 2021Q1

REPORT INFORMATION
  Report Type: Spontaneous
  Country: PT (occurrence: PT)
  Receive Date: 20210217
  Receipt Date: 20210225
  Transmission Date: 20210420
  Serious: Yes (Hospitalization, Other)
  Sender: FDA-Public Use
  Company Number: PT-AUROBINDO-AUR-APL-2021-005698

PATIENT
  Age: 71 Year
  Sex: Male
  Weight: 70 kg

DRUGS (1)
  1. AMOXICILLIN+CLAVULANIC ACID 875/125MG [Suspect]
     Active Substance: AMOXICILLIN\CLAVULANIC ACID
     Indication: RESPIRATORY TRACT INFECTION
     Dosage: 1 DOSAGE FORM, TWO TIMES A DAY
     Route: 048
     Dates: start: 2019, end: 2019

REACTIONS (9)
  - Drug-induced liver injury [Recovered/Resolved]
  - Rash macular [Recovered/Resolved]
  - Cholestasis [Unknown]
  - Hyperbilirubinaemia [Unknown]
  - Pruritus [Unknown]
  - Choluria [Unknown]
  - Jaundice cholestatic [Recovered/Resolved]
  - Rash [Unknown]
  - Deficiency of bile secretion [Unknown]

NARRATIVE: CASE EVENT DATE: 2019
